FAERS Safety Report 4963268-9 (Version None)
Quarter: 2006Q2

REPORT INFORMATION
  Report Type: 
  Country: None (occurrence: None)
  Receive Date: 20060405
  Receipt Date: 20040610
  Transmission Date: 20061013
  Serious: Yes (Congenital Anomaly)
  Sender: FDA-Public Use
  Company Number: US-MERCK-0406USA01271

PATIENT
  Age: 54 Day
  Sex: Male
  Weight: 5 kg

DRUGS (4)
  1. SINGULAIR [Suspect]
     Indication: BRONCHIAL HYPERACTIVITY
     Dates: start: 20040608, end: 20040609
  2. EFFEXOR [Concomitant]
  3. VITAMINS (UNSPECIFIED) [Concomitant]
  4. PHENERGAN TABLETS/SUPPOSITORIES [Concomitant]

REACTIONS (2)
  - DACRYOSTENOSIS CONGENITAL [None]
  - DRUG EXPOSURE DURING PREGNANCY [None]
